FAERS Safety Report 13366275 (Version 1)
Quarter: 2017Q1

REPORT INFORMATION
  Report Type: Spontaneous
  Country: US (occurrence: US)
  Receive Date: 20170323
  Receipt Date: 20170323
  Transmission Date: 20170429
  Serious: No
  Sender: FDA-Public Use
  Company Number: US-ACTELION-A-NJ2017-151451

PATIENT
  Age: 77 Year
  Sex: Male

DRUGS (2)
  1. TRACLEER [Suspect]
     Active Substance: BOSENTAN
     Indication: LUNG DISORDER
     Dosage: 62.5 MG, UNK
     Route: 048
     Dates: start: 20170223
  2. ELIQUIS [Concomitant]
     Active Substance: APIXABAN
     Dosage: 5 MG, UNK

REACTIONS (1)
  - Thrombosis [Unknown]
